FAERS Safety Report 20145725 (Version 2)
Quarter: 2021Q4

REPORT INFORMATION
  Report Type: Spontaneous
  Country: RU (occurrence: RU)
  Receive Date: 20211203
  Receipt Date: 20211222
  Transmission Date: 20220304
  Serious: Yes (Death, Other)
  Sender: FDA-Public Use
  Company Number: RU-ELI_LILLY_AND_COMPANY-RU202111012194

PATIENT
  Sex: Female

DRUGS (4)
  1. ABEMACICLIB [Suspect]
     Active Substance: ABEMACICLIB
     Indication: Breast cancer
     Dosage: 200 MG, BID
     Route: 065
     Dates: start: 20191211
  2. ABEMACICLIB [Suspect]
     Active Substance: ABEMACICLIB
     Indication: Bone cancer
     Dosage: 150 MG, BID
     Route: 065
  3. DENOSUMAB [Concomitant]
     Active Substance: DENOSUMAB
     Indication: Breast cancer
     Dosage: UNK, UNKNOWN
     Route: 065
  4. DENOSUMAB [Concomitant]
     Active Substance: DENOSUMAB
     Indication: Bone cancer

REACTIONS (3)
  - Malignant neoplasm progression [Fatal]
  - Osteonecrosis of jaw [Unknown]
  - Haematotoxicity [Unknown]
